FAERS Safety Report 17274081 (Version 1)
Quarter: 2020Q1

REPORT INFORMATION
  Report Type: Report from Study
  Country: DE (occurrence: DE)
  Receive Date: 20200115
  Receipt Date: 20200115
  Transmission Date: 20200409
  Serious: Yes (Hospitalization, Other)
  Sender: FDA-Public Use
  Company Number: DE-MYLANLABS-2020M1004124

PATIENT
  Sex: Female

DRUGS (3)
  1. ABATACEPT [Suspect]
     Active Substance: ABATACEPT
     Indication: RHEUMATOID ARTHRITIS
     Dosage: 125 MILLIGRAM, QWK
     Route: 058
     Dates: end: 20190207
  2. ABATACEPT [Suspect]
     Active Substance: ABATACEPT
     Dosage: UNK
     Route: 058
     Dates: start: 20190408
  3. METHOTREXATE. [Suspect]
     Active Substance: METHOTREXATE
     Indication: RHEUMATOID ARTHRITIS
     Dosage: 20 MILLIGRAM, QWK
     Route: 065

REACTIONS (3)
  - Device related infection [Recovered/Resolved]
  - Septic arthritis streptobacillus [Recovered/Resolved]
  - Hypertonia [Not Recovered/Not Resolved]

NARRATIVE: CASE EVENT DATE: 20190109
